FAERS Safety Report 8798679 (Version 1)
Quarter: 2012Q4

REPORT INFORMATION
  Report Type: Spontaneous
  Country: US (occurrence: None)
  Receive Date: 20120917
  Receipt Date: 20120917
  Transmission Date: 20130627
  Serious: Yes (Other)
  Sender: FDA-Public Use
  Company Number: None

PATIENT
  Age: 92 Year
  Sex: Female

DRUGS (2)
  1. LISINOPRIL [Suspect]
     Indication: CONGENITAL HEART DISEASE NOS
     Dosage: 1 in morning intracardiac
     Route: 016
     Dates: start: 20120512, end: 20120609
  2. LISINOPRIL [Suspect]
     Indication: BLOOD PRESSURE HIGH
     Dosage: 1 in morning intracardiac
     Route: 016
     Dates: start: 20120512, end: 20120609

REACTIONS (17)
  - Asthenia [None]
  - Confusional state [None]
  - Hallucination [None]
  - Communication disorder [None]
  - Verbigeration [None]
  - Dysphagia [None]
  - Heart rate increased [None]
  - Heart rate decreased [None]
  - Heart rate irregular [None]
  - Dyspnoea [None]
  - Liver disorder [None]
  - Chromaturia [None]
  - Decreased appetite [None]
  - Faeces pale [None]
  - Hypotension [None]
  - Mood altered [None]
  - Dizziness [None]
